FAERS Safety Report 8798262 (Version 1)
Quarter: 2012Q4

REPORT INFORMATION
  Report Type: 
  Country: GB (occurrence: GB)
  Receive Date: 20120920
  Receipt Date: 20120920
  Transmission Date: 20130627
  Serious: Yes (Hospitalization)
  Sender: FDA-Public Use
  Company Number: GB-PFIZER INC-2012226692

PATIENT
  Age: 32 Year
  Sex: Female
  Weight: 56 kg

DRUGS (6)
  1. LINEZOLID [Suspect]
     Indication: URINARY TRACT INFECTION
     Dosage: 600 mg, 2x/day
     Route: 048
     Dates: start: 20120720, end: 20120802
  2. TACROLIMUS [Concomitant]
  3. MYFORTIC [Concomitant]
  4. OMEPRAZOLE [Concomitant]
  5. CO-TRIMOXAZOLE [Concomitant]
  6. ASPIRIN [Concomitant]

REACTIONS (2)
  - Blood creatinine increased [Recovered/Resolved with Sequelae]
  - Renal impairment [Recovered/Resolved with Sequelae]
